FAERS Safety Report 17050734 (Version 1)
Quarter: 2019Q4

REPORT INFORMATION
  Report Type: Spontaneous
  Country: US (occurrence: US)
  Receive Date: 20191119
  Receipt Date: 20191119
  Transmission Date: 20200122
  Serious: Yes (Hospitalization, Other)
  Sender: FDA-Public Use
  Company Number: US-SA-2019SA320683

PATIENT
  Age: 80 Year
  Sex: Male

DRUGS (5)
  1. PLAVIX [Suspect]
     Active Substance: CLOPIDOGREL BISULFATE
     Dosage: UNK
  2. ETANERCEPT [Suspect]
     Active Substance: ETANERCEPT
     Dosage: UNK SINGLE DOSE
     Dates: start: 20190107, end: 20190107
  3. APIXABAN [Suspect]
     Active Substance: APIXABAN
     Dosage: 5 MG
  4. APIXABAN [Suspect]
     Active Substance: APIXABAN
     Dosage: 2.5 MG
  5. ACETYLSALICYLIC ACID [Suspect]
     Active Substance: ASPIRIN

REACTIONS (8)
  - Staphylococcal infection [Unknown]
  - Post procedural cellulitis [Recovering/Resolving]
  - Condition aggravated [Unknown]
  - Vein rupture [Recovering/Resolving]
  - Infection [Recovering/Resolving]
  - Peripheral venous disease [Unknown]
  - Wound drainage [Recovering/Resolving]
  - Haematoma [Recovering/Resolving]

NARRATIVE: CASE EVENT DATE: 2019
